FAERS Safety Report 8061529-0 (Version None)
Quarter: 2012Q1

REPORT INFORMATION
  Report Type: 
  Country: None (occurrence: None)
  Receive Date: 20120120
  Receipt Date: 20120111
  Transmission Date: 20120608
  Serious: No
  Sender: FDA-Public Use
  Company Number: US-ASTRAZENECA-2011SE52845

PATIENT
  Age: 54 Year
  Sex: Male
  Weight: 104.3 kg

DRUGS (12)
  1. COLACE [Concomitant]
  2. NEXIUM [Suspect]
     Indication: GASTROOESOPHAGEAL REFLUX DISEASE
     Route: 048
     Dates: start: 20060101
  3. FLUMAX [Concomitant]
     Indication: PROSTATIC DISORDER
  4. DIABETES MEDICATIONS [Concomitant]
  5. CELEXA [Concomitant]
  6. AMBIEN [Concomitant]
     Indication: SLEEP DISORDER
  7. PHENERGEN [Concomitant]
  8. LACTULOSE [Concomitant]
  9. PROTRAM [Concomitant]
  10. DIAZEPAM [Concomitant]
  11. TRAMADOL HCL [Concomitant]
  12. ANALPRAM [Concomitant]

REACTIONS (2)
  - DRUG INEFFECTIVE [None]
  - GASTROOESOPHAGEAL REFLUX DISEASE [None]
